FAERS Safety Report 6122031-6 (Version None)
Quarter: 2009Q1

REPORT INFORMATION
  Report Type: 
  Country: None (occurrence: None)
  Receive Date: 20090316
  Receipt Date: 20090303
  Transmission Date: 20090719
  Serious: Yes (Other)
  Sender: FDA-Public Use
  Company Number: AT-1168695

PATIENT
  Sex: Female

DRUGS (1)
  1. AZOPT [Suspect]
     Route: 047

REACTIONS (1)
  - GASTRIC HAEMORRHAGE [None]
